FAERS Safety Report 16620300 (Version 1)
Quarter: 2019Q3

REPORT INFORMATION
  Report Type: Spontaneous
  Country: US (occurrence: US)
  Receive Date: 20190723
  Receipt Date: 20190723
  Transmission Date: 20191004
  Serious: No
  Sender: FDA-Public Use
  Company Number: US-CHIESI USA, INC.-US-2018CHI000286

PATIENT
  Sex: Male

DRUGS (1)
  1. ZYFLO CR [Suspect]
     Active Substance: ZILEUTON
     Indication: ASTHMA

REACTIONS (1)
  - Therapeutic response unexpected [Unknown]
